FAERS Safety Report 9027987 (Version 1)
Quarter: 2013Q1

REPORT INFORMATION
  Report Type: Spontaneous
  Country: US (occurrence: None)
  Receive Date: 20130114
  Receipt Date: 20130114
  Transmission Date: 20140127
  Serious: No
  Sender: FDA-Public Use
  Company Number: None

PATIENT
  Sex: Female
  Weight: 110.68 kg

DRUGS (2)
  1. TRIFLUOPERAZINE [Suspect]
     Dosage: ONE - 5MG IN EVE STOPPED USING
     Dates: start: 20120915
  2. TRIFLUOPERAZINE [Suspect]
     Dates: start: 20121025, end: 20121029

REACTIONS (6)
  - Feeling abnormal [None]
  - Restlessness [None]
  - Anxiety [None]
  - Insomnia [None]
  - Disturbance in attention [None]
  - Decreased interest [None]
